FAERS Safety Report 7296419-4 (Version None)
Quarter: 2011Q1

REPORT INFORMATION
  Report Type: 
  Country: None (occurrence: None)
  Receive Date: 20110216
  Receipt Date: 20110124
  Transmission Date: 20110831
  Serious: No
  Sender: FDA-Public Use
  Company Number: US-B.I. PHARMACEUTICALS,INC./RIDGEFIELD-2011-BP-02503BP

PATIENT
  Age: 62 Year
  Sex: Male

DRUGS (9)
  1. JANUMET [Concomitant]
     Indication: DIABETES MELLITUS
  2. METFORMIN [Concomitant]
     Indication: DIABETES MELLITUS
  3. GLIPIZIDE [Concomitant]
     Indication: DIABETES MELLITUS
  4. PRADAXA [Suspect]
     Indication: ATRIAL FLUTTER
     Dosage: 300 MG
     Route: 048
     Dates: start: 20110119
  5. LEVOTHYROXINE SODIUM [Concomitant]
     Indication: HYPOTHYROIDISM
  6. LISINOPRIL [Concomitant]
     Indication: HYPERTENSION
  7. DOXAZOSIN [Concomitant]
     Indication: POLLAKIURIA
  8. PRAVASTATIN [Concomitant]
     Indication: PROPHYLAXIS
  9. METOPROLOL [Concomitant]
     Indication: ATRIAL FLUTTER

REACTIONS (3)
  - ABDOMINAL PAIN UPPER [None]
  - DIARRHOEA [None]
  - INSOMNIA [None]
